FAERS Safety Report 5670493-0 (Version None)
Quarter: 2008Q1

REPORT INFORMATION
  Report Type: 
  Country: None (occurrence: None)
  Receive Date: 20080317
  Receipt Date: 20080317
  Transmission Date: 20080703
  Serious: Yes (Other)
  Sender: FDA-Public Use
  Company Number: None

PATIENT
  Age: 88 Year
  Sex: Female
  Weight: 62.5964 kg

DRUGS (2)
  1. ZOSYN [Suspect]
     Indication: CELLULITIS
     Dosage: 3.375GM Q6H IV
     Route: 042
     Dates: start: 20080307
  2. AVELOX [Suspect]
     Dosage: 400 MG QD IV
     Route: 042
     Dates: start: 20080310

REACTIONS (2)
  - DIARRHOEA [None]
  - RASH [None]
